FAERS Safety Report 5235265-X (Version None)
Quarter: 2007Q1

REPORT INFORMATION
  Report Type: 
  Country: None (occurrence: None)
  Receive Date: 20070207
  Receipt Date: 20070207
  Transmission Date: 20070707
  Serious: Yes (Other)
  Sender: FDA-Public Use
  Company Number: None

PATIENT
  Age: 47 Year
  Sex: Female
  Weight: 86.1834 kg

DRUGS (1)
  1. STRATTERA [Suspect]
     Indication: ATTENTION DEFICIT/HYPERACTIVITY DISORDER
     Dosage: 40MG DAILY PO
     Route: 048
     Dates: start: 20070122, end: 20070207

REACTIONS (3)
  - HEADACHE [None]
  - NAUSEA [None]
  - STOMACH DISCOMFORT [None]
